FAERS Safety Report 9000886 (Version 1)
Quarter: 2013Q1

REPORT INFORMATION
  Report Type: Spontaneous
  Country: US (occurrence: None)
  Receive Date: 20130103
  Receipt Date: 20130103
  Transmission Date: 20140127
  Serious: Yes (Other)
  Sender: FDA-Public Use
  Company Number: None

PATIENT
  Age: 36 Year
  Sex: Male
  Weight: 75.39 kg

DRUGS (2)
  1. PROMETHAZINE [Suspect]
     Indication: NAUSEA
     Route: 048
     Dates: start: 20121128, end: 20121128
  2. PROMETHAZINE [Suspect]
     Indication: VOMITING
     Route: 048
     Dates: start: 20121128, end: 20121128

REACTIONS (6)
  - Injection site pain [None]
  - Injection site swelling [None]
  - Myositis [None]
  - Injection site abscess [None]
  - Muscle necrosis [None]
  - Injection site infection [None]
